FAERS Safety Report 7187033-X (Version None)
Quarter: 2010Q4

REPORT INFORMATION
  Report Type: 
  Country: None (occurrence: None)
  Receive Date: 20101222
  Receipt Date: 20101215
  Transmission Date: 20110411
  Serious: Yes (Other)
  Sender: FDA-Public Use
  Company Number: CH-GILEAD-2010-0034474

PATIENT
  Age: 14 Year
  Sex: Male

DRUGS (2)
  1. TRUVADA [Suspect]
     Indication: PROPHYLAXIS AGAINST HIV INFECTION
     Dates: start: 20100905, end: 20101004
  2. KALETRA [Suspect]
     Dates: start: 20100905, end: 20101004

REACTIONS (1)
  - VISUAL IMPAIRMENT [None]
